FAERS Safety Report 6749219-5 (Version None)
Quarter: 2010Q2

REPORT INFORMATION
  Report Type: 
  Country: None (occurrence: None)
  Receive Date: 20100601
  Receipt Date: 20100525
  Transmission Date: 20101027
  Serious: Yes (Other)
  Sender: FDA-Public Use
  Company Number: US-BAYER-201015929BCC

PATIENT
  Age: 76 Year
  Sex: Female
  Weight: 52 kg

DRUGS (7)
  1. ASPIRIN [Suspect]
     Indication: CARDIAC DISORDER
     Route: 048
     Dates: start: 20030101, end: 20100201
  2. ASPIRIN [Suspect]
     Route: 048
     Dates: start: 20100224
  3. PLAVIX [Suspect]
     Indication: CORONARY ARTERY OCCLUSION
     Route: 048
     Dates: start: 20100224
  4. PLAVIX [Suspect]
     Route: 048
     Dates: start: 20030127, end: 20100218
  5. LIPITOR [Concomitant]
     Route: 065
  6. OSCAL [Concomitant]
     Route: 065
  7. CIPROFLOXACIN [Concomitant]
     Dosage: TOTAL DAILY DOSE: 1000 MG  UNIT DOSE: 500 MG
     Route: 065
     Dates: start: 20100201

REACTIONS (5)
  - CONTUSION [None]
  - FAECES DISCOLOURED [None]
  - GASTRIC DISORDER [None]
  - GASTRITIS [None]
  - URINARY TRACT DISORDER [None]
